FAERS Safety Report 5461055-9 (Version None)
Quarter: 2007Q3

REPORT INFORMATION
  Report Type: 
  Country: None (occurrence: None)
  Receive Date: 20070810
  Receipt Date: 20060726
  Transmission Date: 20080115
  Serious: Yes (Death)
  Sender: FDA-Public Use
  Company Number: 200614873BWH

PATIENT

DRUGS (2)
  1. TRASYLOL [Suspect]
     Indication: CORONARY ARTERY BYPASS
     Dosage: INTRAVENOUS
     Route: 042
  2. AMINOCAPROIC ACID [Concomitant]

REACTIONS (1)
  - DEATH [None]
